FAERS Safety Report 8269572-3 (Version None)
Quarter: 2012Q2

REPORT INFORMATION
  Report Type: 
  Country: None (occurrence: None)
  Receive Date: 20120409
  Receipt Date: 20120307
  Transmission Date: 20120825
  Serious: No
  Sender: FDA-Public Use
  Company Number: US-BAXTER-2012BAX002072

PATIENT

DRUGS (1)
  1. GAMMAGARD LIQUID [Suspect]
     Route: 042

REACTIONS (1)
  - DRUG LEVEL BELOW THERAPEUTIC [None]
